FAERS Safety Report 7550297-4 (Version None)
Quarter: 2011Q2

REPORT INFORMATION
  Report Type: 
  Country: None (occurrence: None)
  Receive Date: 20110615
  Receipt Date: 20110601
  Transmission Date: 20111010
  Serious: Yes (Hospitalization)
  Sender: FDA-Public Use
  Company Number: US-CELGENEUS-ABX40-07-0162

PATIENT
  Sex: Female

DRUGS (13)
  1. BEVACIZUMAB [Suspect]
     Indication: BREAST CANCER
     Dosage: 10 MILLIGRAM/SQ. METER
     Route: 051
     Dates: start: 20061102
  2. CYCLOPHOSPHAMIDE [Suspect]
     Indication: BREAST CANCER
     Dosage: 600 MILLIGRAM/SQ. METER
     Route: 051
     Dates: start: 20061102
  3. LOSARTAN POTASSIUM [Concomitant]
     Dosage: UNK
     Dates: start: 20061213
  4. PEGFILGRASTIM [Concomitant]
     Dosage: 6 MILLIGRAM
     Route: 058
  5. ACETAMINOPHEN [Concomitant]
     Dosage: UNK
     Route: 065
     Dates: start: 20061102
  6. ACETAMINOPHEN [Concomitant]
     Dosage: UNK
  7. ABRAXANE [Suspect]
     Indication: BREAST CANCER
     Dosage: 260 MILLIGRAM/SQ. METER
     Route: 051
     Dates: start: 20061102
  8. RALOXIFENE HYDROCHLORIDE [Concomitant]
     Dosage: UNK
     Dates: start: 20061213
  9. ROSUVASTATIN CALCIUM [Concomitant]
     Dosage: UNK
     Dates: start: 20061213
  10. DOXORUBICIN HCL [Suspect]
     Indication: BREAST CANCER
     Dosage: 60 MILLIGRAM/SQ. METER
     Route: 051
     Dates: start: 20061102
  11. AMBIEN [Concomitant]
     Dosage: UNK
     Dates: start: 20070123
  12. LEVOTHYROXINE SODIUM [Concomitant]
     Dosage: UNK
     Dates: start: 20061213
  13. VENLAFAXINE HYDROCHLORIDE [Concomitant]
     Dosage: UNK
     Dates: start: 20061213

REACTIONS (2)
  - HYPERTENSION [None]
  - HEADACHE [None]
